FAERS Safety Report 7261175 (Version 2)
Quarter: 2014Q1

REPORT INFORMATION
  Report Type: Spontaneous
  Country: US (occurrence: US)
  Receive Date: 20100129
  Receipt Date: 20140204
  Transmission Date: 20141002
  Serious: Yes (Other)
  Sender: FDA-Public Use
  Company Number: US-JNJFOC-20100109406

PATIENT
  Age: 35 Year
  Sex: Female
  Weight: 54.43 kg

DRUGS (5)
  1. CONCERTA [Suspect]
     Indication: HYPERSOMNIA
     Route: 048
     Dates: start: 201001
  2. CONCERTA [Suspect]
     Indication: HYPERSOMNIA
     Route: 048
     Dates: start: 200912, end: 201001
  3. CONCERTA [Suspect]
     Indication: HYPERSOMNIA
     Route: 048
     Dates: start: 200911, end: 200912
  4. VITAMIN   B12 [Concomitant]
     Route: 065
  5. VITAMIN B [Concomitant]
     Route: 065

REACTIONS (10)
  - Haematochezia [Not Recovered/Not Resolved]
  - Swelling [Unknown]
  - Frequent bowel movements [Unknown]
  - Hypersomnia [Not Recovered/Not Resolved]
  - Medication residue present [Unknown]
  - Weight decreased [Unknown]
  - Abdominal pain upper [Not Recovered/Not Resolved]
  - Abdominal pain upper [Not Recovered/Not Resolved]
  - Product quality issue [Unknown]
  - Off label use [Unknown]
